FAERS Safety Report 8495873-X (Version None)
Quarter: 2012Q3

REPORT INFORMATION
  Report Type: 
  Country: None (occurrence: None)
  Receive Date: 20120709
  Receipt Date: 20120703
  Transmission Date: 20120928
  Serious: No
  Sender: FDA-Public Use
  Company Number: US-PFIZER INC-2012159892

PATIENT
  Sex: Female
  Weight: 74.3 kg

DRUGS (17)
  1. LANTUS [Concomitant]
     Indication: DIABETES MELLITUS
     Dosage: UNK
  2. HYDRALAZINE [Concomitant]
     Indication: HYPERTENSION
     Dosage: UNK
  3. ASPIRIN [Concomitant]
     Dosage: UNK, 1X/DAY
  4. METFORMIN [Concomitant]
     Indication: DIABETES MELLITUS
     Dosage: UNK
  5. HUMALOG [Concomitant]
     Indication: DIABETES MELLITUS
     Dosage: UNK
  6. AMLODIPINE [Concomitant]
     Indication: HYPERTENSION
     Dosage: UNK
  7. LOSARTAN [Concomitant]
     Indication: HYPERTENSION
     Dosage: UNK
  8. TRAMADOL [Concomitant]
     Indication: PAIN
     Dosage: UNK
  9. DOXAZOSIN [Concomitant]
     Indication: HYPERTENSION
     Dosage: UNK
  10. INSULIN [Concomitant]
     Indication: DIABETES MELLITUS
     Dosage: UNK
  11. METOPROLOL [Concomitant]
     Indication: HYPERTENSION
     Dosage: UNK
  12. LISINOPRIL [Concomitant]
     Indication: HYPERTENSION
     Dosage: UNK
  13. NEURONTIN [Suspect]
     Indication: NEUROPATHY PERIPHERAL
     Dosage: UNK
     Route: 048
  14. LYRICA [Suspect]
     Indication: NEUROPATHY PERIPHERAL
     Dosage: 100 MG, 3X/DAY
     Route: 048
     Dates: end: 20120629
  15. TRICOR [Concomitant]
     Indication: BLOOD CHOLESTEROL INCREASED
     Dosage: UNK
  16. CLONIDINE [Concomitant]
     Indication: HYPERTENSION
     Dosage: UNK
  17. HYDROCHLOROTHIAZIDE [Concomitant]
     Indication: HYPERTENSION
     Dosage: UNK

REACTIONS (2)
  - TREMOR [None]
  - BURNING SENSATION [None]
